FAERS Safety Report 10196385 (Version 1)
Quarter: 2014Q2

REPORT INFORMATION
  Report Type: Report from Study
  Country: US (occurrence: US)
  Receive Date: 20140527
  Receipt Date: 20140527
  Transmission Date: 20141212
  Serious: Yes (Hospitalization)
  Sender: FDA-Public Use
  Company Number: US-UCBSA-121878

PATIENT
  Age: 38 Year
  Sex: Female
  Weight: 58.8 kg

DRUGS (17)
  1. CIMZIA [Suspect]
     Indication: CROHN^S DISEASE
     Route: 058
     Dates: start: 20130828
  2. CIPRO [Concomitant]
     Indication: CROHN^S DISEASE
     Dates: start: 20120624, end: 20120629
  3. CIPRO [Concomitant]
     Indication: CROHN^S DISEASE
     Dates: start: 20130913
  4. FLAGYL [Concomitant]
     Indication: CROHN^S DISEASE
     Dates: start: 20130911
  5. PREDNISONE [Concomitant]
     Indication: CROHN^S DISEASE
     Dosage: 10 MG DAILY
     Dates: start: 1993
  6. METHYLPREDNISOLONE [Concomitant]
     Indication: CROHN^S DISEASE
     Dates: start: 20131004
  7. METHYLPREDNISOLONE [Concomitant]
     Indication: CROHN^S DISEASE
     Dates: start: 201304, end: 201304
  8. METHYLPREDNISOLONE [Concomitant]
     Indication: CROHN^S DISEASE
     Dates: start: 201202, end: 201202
  9. METHOTREXATE [Concomitant]
     Indication: CROHN^S DISEASE
     Dosage: 25 MG
     Dates: start: 20130904
  10. BUSPAR [Concomitant]
  11. CELEXA [Concomitant]
  12. VITAMIN B12 [Concomitant]
     Dosage: MONTHLY
  13. MULTIVITAMIN [Concomitant]
  14. FOLIC ACID [Concomitant]
  15. LOPRESSOR [Concomitant]
  16. PAMELOR [Concomitant]
  17. PRILOSEC [Concomitant]

REACTIONS (1)
  - Pyelonephritis [Recovered/Resolved]
